FAERS Safety Report 16821728 (Version 1)
Quarter: 2019Q4

REPORT INFORMATION
  Report Type: Spontaneous
  Country: US (occurrence: US)
  Receive Date: 20190917
  Receipt Date: 20190917
  Transmission Date: 20200122
  Serious: Yes (Other)
  Sender: FDA-Public Use
  Company Number: None

PATIENT
  Age: 39 Year
  Sex: Female

DRUGS (1)
  1. OCTREOTIDE IV [Suspect]
     Active Substance: OCTREOTIDE
     Indication: SECRETION DISCHARGE
     Dosage: ?          QUANTITY:1 INJECTION(S);?
     Route: 042
     Dates: start: 20190916, end: 20190916

REACTIONS (5)
  - Hypoaesthesia [None]
  - Chest pain [None]
  - Asthenia [None]
  - Abdominal pain [None]
  - Vomiting [None]

NARRATIVE: CASE EVENT DATE: 20190916
